FAERS Safety Report 11840999 (Version 2)
Quarter: 2016Q1

REPORT INFORMATION
  Report Type: Spontaneous
  Country: BR (occurrence: BR)
  Receive Date: 20151216
  Receipt Date: 20160114
  Transmission Date: 20160525
  Serious: Yes (Other)
  Sender: FDA-Public Use
  Company Number: PHHY2015BR161518

PATIENT
  Age: 89 Year
  Sex: Female

DRUGS (5)
  1. LUDIOMIL [Suspect]
     Active Substance: MAPROTILINE HYDROCHLORIDE
     Indication: DEPRESSION
     Dosage: 25 MG (LUDIOMIL 25 MG 20 TABLETS), QD
     Route: 048
  2. RIVOTRIL [Suspect]
     Active Substance: CLONAZEPAM
     Indication: PRODUCT USED FOR UNKNOWN INDICATION
     Route: 065
  3. LUDIOMIL [Suspect]
     Active Substance: MAPROTILINE HYDROCHLORIDE
     Dosage: 0.5 DF (HALF TABLET OF LUDIOMIL 75 MG 20 TABLETS), QD
     Route: 048
  4. ARADOIS [Concomitant]
     Active Substance: LOSARTAN POTASSIUM
     Indication: HYPERTENSION
     Dosage: 1 DF, QD
     Route: 048
  5. CITALOPRAM [Suspect]
     Active Substance: CITALOPRAM HYDROBROMIDE
     Indication: PRODUCT USED FOR UNKNOWN INDICATION
     Route: 065

REACTIONS (13)
  - Drug intolerance [Unknown]
  - Dry mouth [Recovered/Resolved]
  - Fear of death [Recovered/Resolved]
  - Apathy [Recovered/Resolved]
  - Panic disorder [Recovered/Resolved]
  - Dyspnoea [Recovered/Resolved]
  - Anxiety [Recovered/Resolved]
  - Somnolence [Recovered/Resolved]
  - Cough [Recovered/Resolved]
  - Weight decreased [Recovered/Resolved]
  - Wrong technique in product usage process [Unknown]
  - Malaise [Recovered/Resolved]
  - Incorrect dose administered [Unknown]

NARRATIVE: CASE EVENT DATE: 201511
